FAERS Safety Report 25969311 (Version 1)
Quarter: 2025Q4

REPORT INFORMATION
  Report Type: Spontaneous
  Country: JP (occurrence: JP)
  Receive Date: 20251028
  Receipt Date: 20251028
  Transmission Date: 20260118
  Serious: Yes (Life-Threatening, Hospitalization)
  Sender: COSETTE PHARMACEUTICALS INC
  Company Number: JP-DSJP-DS-2025-169804-JPAA

PATIENT
  Age: 80 Year
  Sex: Male

DRUGS (3)
  1. EFFIENT [Suspect]
     Active Substance: PRASUGREL HYDROCHLORIDE
     Indication: Acute myocardial infarction
     Route: 065
  2. ASPIRIN [Suspect]
     Active Substance: ASPIRIN
     Indication: Acute myocardial infarction
     Route: 065
  3. EDOXABAN TOSYLATE [Suspect]
     Active Substance: EDOXABAN TOSYLATE
     Indication: Atrial fibrillation
     Route: 065

REACTIONS (1)
  - Myocardial rupture [Recovering/Resolving]
